FAERS Safety Report 23459888 (Version 1)
Quarter: 2024Q1

REPORT INFORMATION
  Report Type: Spontaneous
  Country: JP (occurrence: JP)
  Receive Date: 20240131
  Receipt Date: 20240131
  Transmission Date: 20240409
  Serious: Yes (Other)
  Sender: FDA-Public Use
  Company Number: JP-SUN PHARMACEUTICAL INDUSTRIES LTD-2024RR-428626

PATIENT
  Age: 72 Year
  Sex: Male
  Weight: 72.4 kg

DRUGS (3)
  1. SITAGLIPTIN [Interacting]
     Active Substance: SITAGLIPTIN
     Indication: Diabetes mellitus
     Dosage: 50 MILLIGRAM, QD
     Route: 065
  2. METFORMIN [Interacting]
     Active Substance: METFORMIN HYDROCHLORIDE
     Indication: Diabetes mellitus
     Dosage: 250 MILLIGRAM, BID
     Route: 065
  3. MITIGLINIDE [Interacting]
     Active Substance: MITIGLINIDE
     Indication: Diabetes mellitus
     Dosage: 10 MILLIGRAM, TID
     Route: 065

REACTIONS (2)
  - Drug interaction [Unknown]
  - Drug ineffective [Unknown]
